FAERS Safety Report 5200800-4 (Version None)
Quarter: 2006Q4

REPORT INFORMATION
  Report Type: 
  Country: None (occurrence: None)
  Receive Date: 20061016
  Receipt Date: 20060901
  Transmission Date: 20070319
  Serious: No
  Sender: FDA-Public Use
  Company Number: 2006SP003176

PATIENT
  Age: 65 Year
  Sex: Female
  Weight: 81.6475 kg

DRUGS (4)
  1. LUNESTA [Suspect]
     Indication: SLEEP APNOEA SYNDROME
     Dosage: 2 MG; 1X; ORAL
     Route: 048
     Dates: start: 20060831, end: 20060831
  2. ATENOLOL [Concomitant]
  3. NEXIUM [Concomitant]
  4. ASPIRIN [Concomitant]

REACTIONS (2)
  - DYSGEUSIA [None]
  - RETCHING [None]
